FAERS Safety Report 13167393 (Version 1)
Quarter: 2017Q1

REPORT INFORMATION
  Report Type: Spontaneous
  Country: FI (occurrence: FI)
  Receive Date: 20170131
  Receipt Date: 20170131
  Transmission Date: 20170428
  Serious: Yes (Hospitalization)
  Sender: FDA-Public Use
  Company Number: FI-GLAXOSMITHKLINE-FI2017GSK011523

PATIENT
  Age: 1 Year
  Sex: Female

DRUGS (2)
  1. NASOLIN (XYLOMETAZOLINE HYDROCHLORIDE) [Concomitant]
     Indication: NASAL CONGESTION
     Dosage: 0.5 MG/ML, 1D
     Route: 045
     Dates: start: 20170116
  2. VENTOLINE EVOHALER [Suspect]
     Active Substance: ALBUTEROL SULFATE
     Indication: DYSPNOEA
     Dosage: 0.1 MG/DOSE 1-2 DOSES 1-4 TIMES A DAY
     Dates: start: 20170116, end: 20170116

REACTIONS (3)
  - Erythema [Not Recovered/Not Resolved]
  - Urticaria [Not Recovered/Not Resolved]
  - Crying [Not Recovered/Not Resolved]

NARRATIVE: CASE EVENT DATE: 20170116
